FAERS Safety Report 10808677 (Version 1)
Quarter: 2015Q1

REPORT INFORMATION
  Report Type: Report from Study
  Country: US (occurrence: US)
  Receive Date: 20150217
  Receipt Date: 20150217
  Transmission Date: 20150721
  Serious: No
  Sender: FDA-Public Use
  Company Number: US-ABBVIE-14K-163-1230444-00

PATIENT
  Age: 13 Year
  Sex: Female

DRUGS (4)
  1. PREDNISONE. [Concomitant]
     Active Substance: PREDNISONE
  2. HUMIRA [Suspect]
     Active Substance: ADALIMUMAB
     Indication: ANKYLOSING SPONDYLITIS
     Dates: start: 20140407
  3. PREDNISONE. [Concomitant]
     Active Substance: PREDNISONE
     Indication: PRODUCT USED FOR UNKNOWN INDICATION
  4. ANTIINFLAMMATORY AGENTS [Concomitant]
     Active Substance: UNSPECIFIED INGREDIENT
     Indication: PRODUCT USED FOR UNKNOWN INDICATION

REACTIONS (3)
  - Swelling face [Recovered/Resolved]
  - Nasal congestion [Not Recovered/Not Resolved]
  - Oropharyngeal pain [Not Recovered/Not Resolved]

NARRATIVE: CASE EVENT DATE: 20140408
